FAERS Safety Report 20313666 (Version 1)
Quarter: 2022Q1

REPORT INFORMATION
  Report Type: Spontaneous
  Country: US (occurrence: US)
  Receive Date: 20220109
  Receipt Date: 20220109
  Transmission Date: 20220423
  Serious: No
  Sender: FDA-Public Use
  Company Number: US-SA-SAC20211231000384

PATIENT
  Age: 67 Year
  Sex: Male

DRUGS (10)
  1. DUPIXENT [Suspect]
     Active Substance: DUPILUMAB
     Indication: Illness
     Dosage: 300 MG, QOW
     Route: 058
     Dates: start: 202006
  2. SYNTHROID [Concomitant]
     Active Substance: LEVOTHYROXINE SODIUM
  3. BENADRYL [Concomitant]
     Active Substance: DIPHENHYDRAMINE HYDROCHLORIDE
  4. FISH OIL [Concomitant]
     Active Substance: FISH OIL
     Dosage: 25MG
  5. IRON [Concomitant]
     Active Substance: IRON
  6. POTASSIUM CHLORIDE [Concomitant]
     Active Substance: POTASSIUM CHLORIDE
  7. VITAMIN D NOS [Concomitant]
     Active Substance: VITAMIN D NOS
  8. VITAMIN C [Concomitant]
     Active Substance: ASCORBIC ACID
  9. VITAMIN B12 [Concomitant]
     Active Substance: CYANOCOBALAMIN
     Indication: Illness
  10. MAGNESIUM [Concomitant]
     Active Substance: MAGNESIUM

REACTIONS (2)
  - Vision blurred [Unknown]
  - Rash [Unknown]
